FAERS Safety Report 18050154 (Version 1)
Quarter: 2020Q3

REPORT INFORMATION
  Report Type: Spontaneous
  Country: PL (occurrence: PL)
  Receive Date: 20200721
  Receipt Date: 20200721
  Transmission Date: 20201103
  Serious: Yes (Other)
  Sender: FDA-Public Use
  Company Number: PL-TEVA-2020-PL-1802102

PATIENT
  Age: 80 Year
  Sex: Male

DRUGS (4)
  1. FLUOROURACIL. [Suspect]
     Active Substance: FLUOROURACIL
     Indication: COLON CANCER
     Dosage: 716 MG
     Route: 040
     Dates: start: 20170912, end: 20170914
  2. OXALIPLATINE [Suspect]
     Active Substance: OXALIPLATIN
     Indication: COLON CANCER
     Dosage: 152.15 MG
     Route: 042
     Dates: start: 20170912, end: 20170912
  3. FLUOROURACIL. [Suspect]
     Active Substance: FLUOROURACIL
     Dosage: ROUTE OF ADMINISTRATION : INFUSION PUMP .
     Route: 041
     Dates: start: 20170912, end: 20170914
  4. CALCIUM FOLINATE [Suspect]
     Active Substance: LEUCOVORIN CALCIUM
     Indication: COLON CANCER
     Dosage: 358 MG
     Route: 042
     Dates: start: 20170912, end: 20170914

REACTIONS (1)
  - Neutropenia [Unknown]

NARRATIVE: CASE EVENT DATE: 20170926
